FAERS Safety Report 14625419 (Version 2)
Quarter: 2018Q1

REPORT INFORMATION
  Report Type: Spontaneous
  Country: US (occurrence: US)
  Receive Date: 20180312
  Receipt Date: 20180313
  Transmission Date: 20180509
  Serious: No
  Sender: FDA-Public Use
  Company Number: US-PFIZER INC-2018097840

PATIENT
  Sex: Female

DRUGS (2)
  1. IBRANCE [Suspect]
     Active Substance: PALBOCICLIB
     Dosage: 125 MG, UNK (TAKEN OFF OF IBRANCE A FEW DAYS BEFORE THE END OF THE 21 DAY CYCLE)
  2. FASLODEX [Concomitant]
     Active Substance: FULVESTRANT
     Dosage: UNK

REACTIONS (8)
  - Sensation of foreign body [Unknown]
  - Asthenia [Unknown]
  - Vomiting [Not Recovered/Not Resolved]
  - White blood cell count decreased [Unknown]
  - Viral infection [Unknown]
  - Diarrhoea [Unknown]
  - Malaise [Unknown]
  - Parosmia [Unknown]
